FAERS Safety Report 8525707-6 (Version None)
Quarter: 2012Q3

REPORT INFORMATION
  Report Type: 
  Country: None (occurrence: None)
  Receive Date: 20120720
  Receipt Date: 20120703
  Transmission Date: 20120928
  Serious: Yes (Life-Threatening, Hospitalization)
  Sender: FDA-Public Use
  Company Number: FR-009507513-1203FRA00008

PATIENT

DRUGS (9)
  1. LASIX [Suspect]
     Dosage: 20 MG, QD
     Route: 048
     Dates: end: 20120101
  2. VALSARTAN [Suspect]
     Dosage: 160 MG, QD
     Route: 048
     Dates: end: 20120107
  3. VOLTAREN [Suspect]
     Dosage: 75 MG, QD
     Route: 048
     Dates: end: 20120107
  4. JANUVIA [Suspect]
     Dosage: 100 MG, QD
     Route: 048
     Dates: end: 20120107
  5. LASIX [Suspect]
     Dosage: 40 MG, QD
     Route: 048
     Dates: start: 20120102, end: 20120107
  6. POTASSIUM CHLORIDE [Suspect]
     Dosage: 1 DF, QD
     Route: 048
     Dates: end: 20120107
  7. LERCANIDIPINE [Suspect]
     Dosage: 20 MG, QD
     Route: 048
     Dates: end: 20120107
  8. ENALAPRIL MALEATE AND HYDROCHLOROTHIAZIDE [Suspect]
     Indication: HYPERTENSION
     Dosage: 20MG-12.5
     Route: 048
     Dates: end: 20120107
  9. METFORMIN HCL [Suspect]
     Indication: TYPE 2 DIABETES MELLITUS
     Dosage: 1 G, QID
     Route: 048
     Dates: end: 20120107

REACTIONS (6)
  - CARDIO-RESPIRATORY ARREST [None]
  - HYPERKALAEMIA [None]
  - LACTIC ACIDOSIS [None]
  - RENAL FAILURE ACUTE [None]
  - HYPOGLYCAEMIA [None]
  - COMA [None]
